FAERS Safety Report 4401400-6 (Version None)
Quarter: 2004Q3

REPORT INFORMATION
  Report Type: 
  Country: None (occurrence: None)
  Receive Date: 20040907
  Receipt Date: 20040419
  Transmission Date: 20050211
  Serious: No
  Sender: FDA-Public Use
  Company Number: US-BRISTOL-MYERS SQUIBB COMPANY-12564530

PATIENT
  Age: 86 Year
  Sex: Male
  Weight: 73 kg

DRUGS (2)
  1. COUMADIN [Suspect]
     Indication: CARDIAC DISORDER
     Dosage: 2.5 MG (1/2 5 MG TABLET) SIX DAYS A WEEK AND 5 MG (1 TABLET) ONE DAY A WEEK.
     Route: 048
  2. ENSURE [Interacting]
     Dosage: 1 CAN DAILY
     Route: 048

REACTIONS (2)
  - DRUG INTERACTION [None]
  - INTERNATIONAL NORMALISED RATIO ABNORMAL [None]
